FAERS Safety Report 16290015 (Version 3)
Quarter: 2021Q2

REPORT INFORMATION
  Report Type: Spontaneous
  Country: US (occurrence: US)
  Receive Date: 20190509
  Receipt Date: 20210505
  Transmission Date: 20210716
  Serious: Yes (Death, Other)
  Sender: FDA-Public Use
  Company Number: US-ASTRAZENECA-2019SE66941

PATIENT
  Age: 834 Month
  Sex: Female
  Weight: 86.2 kg

DRUGS (79)
  1. ESTRADIOL. [Concomitant]
     Active Substance: ESTRADIOL
  2. METHADONE HYDROCHLORIDE. [Concomitant]
     Active Substance: METHADONE HYDROCHLORIDE
  3. CLINDAMYCIN HYDROCHLORIDE. [Concomitant]
     Active Substance: CLINDAMYCIN HYDROCHLORIDE
  4. PROAIR HFA [Concomitant]
     Active Substance: ALBUTEROL SULFATE
  5. ZOLPIDEM TARTRATE. [Concomitant]
     Active Substance: ZOLPIDEM TARTRATE
  6. ONDANSETRON HCL [Concomitant]
     Active Substance: ONDANSETRON HYDROCHLORIDE
  7. PEPCID [Concomitant]
     Active Substance: FAMOTIDINE
     Dates: start: 2005
  8. GABAPENTIN. [Concomitant]
     Active Substance: GABAPENTIN
  9. OXYBUTYNIN. [Concomitant]
     Active Substance: OXYBUTYNIN CHLORIDE
  10. LIDOCAINE. [Concomitant]
     Active Substance: LIDOCAINE
  11. BISACODYL. [Concomitant]
     Active Substance: BISACODYL
  12. CICLOPIROX. [Concomitant]
     Active Substance: CICLOPIROX
  13. SENOKOT [Concomitant]
     Active Substance: SENNOSIDES
  14. AMLODIPINE [Concomitant]
     Active Substance: AMLODIPINE BESYLATE
  15. CRANBERRY. [Concomitant]
     Active Substance: CRANBERRY
  16. NEXIUM [Suspect]
     Active Substance: ESOMEPRAZOLE MAGNESIUM
     Indication: GASTROOESOPHAGEAL REFLUX DISEASE
     Route: 048
     Dates: start: 200909, end: 201409
  17. NEXIUM [Suspect]
     Active Substance: ESOMEPRAZOLE MAGNESIUM
     Indication: GASTROOESOPHAGEAL REFLUX DISEASE
     Route: 048
     Dates: start: 20050706, end: 20150122
  18. SIMVASTATIN. [Concomitant]
     Active Substance: SIMVASTATIN
     Indication: DRUG DEPENDENCE
     Dates: start: 20091106
  19. LEVEMIR [Concomitant]
     Active Substance: INSULIN DETEMIR
  20. DOXYCYCLINE HYCLATE. [Concomitant]
     Active Substance: DOXYCYCLINE HYCLATE
  21. BUPROPION HYDROCHLORIDE. [Concomitant]
     Active Substance: BUPROPION HYDROCHLORIDE
  22. FLUTICASONE PROP [Concomitant]
     Active Substance: FLUTICASONE PROPIONATE
  23. METOPROLOL SUCCINATE. [Concomitant]
     Active Substance: METOPROLOL SUCCINATE
  24. MELOXICAM. [Concomitant]
     Active Substance: MELOXICAM
  25. ERYTHROMYCIN. [Concomitant]
     Active Substance: ERYTHROMYCIN
  26. HYDROCHLOROTHIAZIDE. [Concomitant]
     Active Substance: HYDROCHLOROTHIAZIDE
  27. TYLENOL [Concomitant]
     Active Substance: ACETAMINOPHEN
  28. CLARITIN [Concomitant]
     Active Substance: LORATADINE
  29. SUCCINYLCHOLINE [Concomitant]
     Active Substance: SUCCINYLCHOLINE
  30. AMMONIUM CHLORIDE. [Concomitant]
     Active Substance: AMMONIUM CHLORIDE
  31. MULTIVITAMINS [Concomitant]
     Active Substance: VITAMINS
     Indication: HYPOVITAMINOSIS
     Dates: start: 2010, end: 2012
  32. WARFARIN SODIUM. [Concomitant]
     Active Substance: WARFARIN SODIUM
  33. POTASSIUM CHLORIDE. [Concomitant]
     Active Substance: POTASSIUM CHLORIDE
  34. DOCQLACE [Concomitant]
     Active Substance: DOCUSATE SODIUM
  35. TRAMADOL HYDROCHLORIDE. [Concomitant]
     Active Substance: TRAMADOL HYDROCHLORIDE
  36. CYCLOBENZAPRINE. [Concomitant]
     Active Substance: CYCLOBENZAPRINE
  37. IRON [Concomitant]
     Active Substance: IRON
  38. NEXIUM [Suspect]
     Active Substance: ESOMEPRAZOLE MAGNESIUM
     Indication: GASTROOESOPHAGEAL REFLUX DISEASE
     Route: 048
     Dates: start: 20100421
  39. PROTONIX [Suspect]
     Active Substance: PANTOPRAZOLE SODIUM
     Indication: GASTROOESOPHAGEAL REFLUX DISEASE
     Route: 065
     Dates: start: 20140130, end: 20150205
  40. FUROSEMIDE. [Concomitant]
     Active Substance: FUROSEMIDE
     Indication: DRUG ABUSE
     Dates: start: 20140131
  41. ZANTAC [Concomitant]
     Active Substance: RANITIDINE HYDROCHLORIDE
  42. ENOXAPARIN [Concomitant]
     Active Substance: ENOXAPARIN
  43. AMLODIPINE BESYLATE. [Concomitant]
     Active Substance: AMLODIPINE BESYLATE
  44. CHOLESTYRAMINE. [Concomitant]
     Active Substance: CHOLESTYRAMINE
  45. HYDROMORPHONE [Concomitant]
     Active Substance: HYDROMORPHONE
  46. LACTOBACILLUS ACIDOPHILUS [Concomitant]
     Active Substance: LACTOBACILLUS ACIDOPHILUS
  47. DOXAZOSIN MESYLATE. [Concomitant]
     Active Substance: DOXAZOSIN MESYLATE
  48. FENTANYL. [Concomitant]
     Active Substance: FENTANYL
  49. PROMETHAZINE [Concomitant]
     Active Substance: PROMETHAZINE HYDROCHLORIDE
  50. SULFAMETHOXAZOLE [Concomitant]
     Active Substance: SULFAMETHOXAZOLE
  51. FERROUS OXIDE. [Concomitant]
     Active Substance: FERROUS OXIDE
  52. PROTONIX [Suspect]
     Active Substance: PANTOPRAZOLE SODIUM
     Indication: GASTROOESOPHAGEAL REFLUX DISEASE
     Dosage: GENERIC
     Route: 065
     Dates: start: 20120917, end: 20160809
  53. HYDRALAZINE [Concomitant]
     Active Substance: HYDRALAZINE HYDROCHLORIDE
  54. OXYCODONE HYDROCHLORIDE. [Concomitant]
     Active Substance: OXYCODONE HYDROCHLORIDE
  55. METFORMIN HYDROCHLORIDE. [Concomitant]
     Active Substance: METFORMIN HYDROCHLORIDE
  56. FERROUS GLUCONATE [Concomitant]
     Active Substance: FERROUS GLUCONATE
  57. METOPROLOL TARTRATE. [Concomitant]
     Active Substance: METOPROLOL TARTRATE
  58. BUSPIRONE HYDROCHLORIDE. [Concomitant]
     Active Substance: BUSPIRONE HYDROCHLORIDE
  59. VERSED [Concomitant]
     Active Substance: MIDAZOLAM HYDROCHLORIDE
  60. ETOMIDATE. [Concomitant]
     Active Substance: ETOMIDATE
  61. CEPHALEXIN. [Concomitant]
     Active Substance: CEPHALEXIN
  62. MIDAZOLAM. [Concomitant]
     Active Substance: MIDAZOLAM
  63. ZOSTAVAX [Concomitant]
     Active Substance: VARICELLA-ZOSTER VIRUS STRAIN OKA/MERCK LIVE ANTIGEN
  64. PROTONIX [Suspect]
     Active Substance: PANTOPRAZOLE SODIUM
     Indication: GASTROOESOPHAGEAL REFLUX DISEASE
     Route: 065
     Dates: start: 200909, end: 201409
  65. LORAZEPAM. [Concomitant]
     Active Substance: LORAZEPAM
  66. AZITHROMYCIN ANHYDROUS. [Concomitant]
     Active Substance: AZITHROMYCIN ANHYDROUS
  67. FLUCONAZOLE. [Concomitant]
     Active Substance: FLUCONAZOLE
  68. DILAUDID [Concomitant]
     Active Substance: HYDROMORPHONE HYDROCHLORIDE
  69. SALINE [Concomitant]
     Active Substance: SODIUM CHLORIDE
  70. FOLIC ACID. [Concomitant]
     Active Substance: FOLIC ACID
  71. MAGNESIUM OXIDE. [Concomitant]
     Active Substance: MAGNESIUM OXIDE
  72. NEXIUM 24HR [Suspect]
     Active Substance: ESOMEPRAZOLE MAGNESIUM
     Indication: GASTROOESOPHAGEAL REFLUX DISEASE
     Route: 048
     Dates: start: 2015
  73. LISINOPRIL. [Concomitant]
     Active Substance: LISINOPRIL
     Indication: HYPERTENSION
     Dates: start: 20100803, end: 20160726
  74. BYDUREON [Concomitant]
     Active Substance: EXENATIDE
  75. PROPOFOL. [Concomitant]
     Active Substance: PROPOFOL
  76. VITAMIN D3 [Concomitant]
     Active Substance: CHOLECALCIFEROL
  77. NEXIUM [Suspect]
     Active Substance: ESOMEPRAZOLE MAGNESIUM
     Indication: GASTROOESOPHAGEAL REFLUX DISEASE
     Dosage: GENERIC
     Route: 065
     Dates: start: 20140924, end: 20150120
  78. NEXIUM 24HR [Suspect]
     Active Substance: ESOMEPRAZOLE MAGNESIUM
     Indication: GASTROOESOPHAGEAL REFLUX DISEASE
     Route: 048
     Dates: start: 200909, end: 201409
  79. CARVEDILOL. [Concomitant]
     Active Substance: CARVEDILOL
     Indication: BETA GLOBULIN ABNORMAL
     Dates: start: 20140801

REACTIONS (3)
  - Arteriosclerosis [Fatal]
  - Chronic kidney disease [Unknown]
  - Renal failure [Unknown]

NARRATIVE: CASE EVENT DATE: 201409
